FAERS Safety Report 4421030-X (Version None)
Quarter: 2004Q3

REPORT INFORMATION
  Report Type: 
  Country: None (occurrence: None)
  Receive Date: 20040809
  Receipt Date: 20040728
  Transmission Date: 20050211
  Serious: Yes (Hospitalization)
  Sender: FDA-Public Use
  Company Number: IT-GLAXOSMITHKLINE-B0341191A

PATIENT
  Age: 56 Year
  Sex: Male

DRUGS (4)
  1. THIOGUANINE [Suspect]
     Dosage: 360MG PER DAY
     Route: 048
     Dates: start: 20040707, end: 20040711
  2. CYTARABINE HYDROCHLORIDE [Concomitant]
     Dosage: 20MG PER DAY
     Route: 042
     Dates: start: 20040707, end: 20040707
  3. IDARUBICIN HCL [Concomitant]
     Dosage: 710MG PER DAY
     Route: 042
     Dates: start: 20040707, end: 20040711
  4. TRETINOIN [Concomitant]
     Route: 048
     Dates: start: 20040707, end: 20040721

REACTIONS (1)
  - FEBRILE NEUTROPENIA [None]
